FAERS Safety Report 4553615-4 (Version None)
Quarter: 2004Q4

REPORT INFORMATION
  Report Type: 
  Country: None (occurrence: None)
  Receive Date: 20041227
  Receipt Date: 20041018
  Transmission Date: 20050328
  Serious: No
  Sender: FDA-Public Use
  Company Number: 04P-163-0277733

PATIENT
  Age: 47 Year
  Sex: Female
  Weight: 136 kg

DRUGS (6)
  1. HUMIRA [Suspect]
     Indication: RHEUMATOID ARTHRITIS
     Dosage: 40 MG, 1 IN 2 WK, SUBCUTANEOUS
     Route: 058
     Dates: start: 20040801
  2. LISINOPRIL [Concomitant]
  3. ATENOLOL [Concomitant]
  4. PREDNISONE [Concomitant]
  5. PANTOPRAZOLE [Concomitant]
  6. MULTIVITAMIN [Concomitant]

REACTIONS (7)
  - EYE SWELLING [None]
  - FEELING ABNORMAL [None]
  - INJECTION SITE ERYTHEMA [None]
  - NASAL DISCOMFORT [None]
  - PRURITUS [None]
  - SYSTEMIC LUPUS ERYTHEMATOSUS RASH [None]
  - THROAT TIGHTNESS [None]
